FAERS Safety Report 13673384 (Version 3)
Quarter: 2017Q3

REPORT INFORMATION
  Report Type: Spontaneous
  Country: US (occurrence: US)
  Receive Date: 20170621
  Receipt Date: 20170726
  Transmission Date: 20171127
  Serious: Yes (Hospitalization)
  Sender: FDA-Public Use
  Company Number: US-SAOL THERAPEUTICS-2017SAO00309

PATIENT
  Age: 39 Year
  Sex: Female
  Weight: 74.83 kg

DRUGS (9)
  1. VALIUM [Suspect]
     Active Substance: DIAZEPAM
     Route: 048
  2. BACLOFEN. [Suspect]
     Active Substance: BACLOFEN
     Indication: PAIN
     Dosage: UNK
     Route: 037
     Dates: start: 20161017, end: 20170209
  3. BACLOFEN. [Suspect]
     Active Substance: BACLOFEN
     Route: 048
  4. BACLOFEN. [Suspect]
     Active Substance: BACLOFEN
     Indication: MUSCLE SPASTICITY
     Dosage: UNK
     Dates: start: 20170209
  5. ORAL MEDICATION FOR THE SPASTICITY (UNSPECIFIED) [Concomitant]
  6. ROBAXIN [Concomitant]
     Active Substance: METHOCARBAMOL
  7. FENTANYL. [Suspect]
     Active Substance: FENTANYL
     Route: 037
  8. BUPIVACAINE. [Suspect]
     Active Substance: BUPIVACAINE
     Route: 037
  9. DILAUDID [Concomitant]
     Active Substance: HYDROMORPHONE HYDROCHLORIDE

REACTIONS (7)
  - Fall [Recovered/Resolved]
  - Perineurial cyst [Unknown]
  - Overdose [Unknown]
  - Drug effect incomplete [Not Recovered/Not Resolved]
  - Intervertebral disc space narrowing [Unknown]
  - Unresponsive to stimuli [Unknown]
  - Intervertebral disc protrusion [Unknown]

NARRATIVE: CASE EVENT DATE: 20170613
